FAERS Safety Report 9465992 (Version 2)
Quarter: 2013Q3

REPORT INFORMATION
  Report Type: Spontaneous
  Country: NZ (occurrence: None)
  Receive Date: 20130814
  Receipt Date: 20130828
  Transmission Date: 20140515
  Serious: Yes (Other)
  Sender: FDA-Public Use
  Company Number: 2013NZ002241

PATIENT
  Age: 71 Year
  Sex: Male

DRUGS (5)
  1. PONATINIB [Suspect]
     Indication: CHRONIC MYELOID LEUKAEMIA
     Route: 048
     Dates: start: 20130423, end: 20130617
  2. LOSARTAN (LOSARTAN POTASSIUM) [Concomitant]
  3. ASPIRIN (ACETYLSALICYLIC ACID) [Concomitant]
  4. SIMVASTATIN (SIVASTATIN) [Concomitant]
  5. FUROSEMIDE (FUROSEMIDE SODIUM) [Concomitant]

REACTIONS (7)
  - Squamous cell carcinoma of skin [None]
  - Malignant neoplasm progression [None]
  - Rash [None]
  - Ichthyosis [None]
  - Eczema [None]
  - Drug effect incomplete [None]
  - Atrial fibrillation [None]
